APPROVED DRUG PRODUCT: FUROSEMIDE
Active Ingredient: FUROSEMIDE
Strength: 10MG/ML
Dosage Form/Route: INJECTABLE;INJECTION
Application: A207552 | Product #001 | TE Code: AP
Applicant: AMNEAL PHARMACEUTICALS CO GMBH
Approved: Jul 20, 2016 | RLD: No | RS: No | Type: RX